FAERS Safety Report 5915610-X (Version None)
Quarter: 2008Q4

REPORT INFORMATION
  Report Type: 
  Country: None (occurrence: None)
  Receive Date: 20081010
  Receipt Date: 20080929
  Transmission Date: 20090506
  Serious: Yes (Death)
  Sender: FDA-Public Use
  Company Number: DE-PFIZER INC-2008079722

PATIENT
  Sex: Male

DRUGS (7)
  1. SUTENT [Suspect]
     Indication: METASTATIC RENAL CELL CARCINOMA
  2. NALOXONE/OXYCODONE [Concomitant]
     Route: 048
     Dates: start: 20080201
  3. PANTOZOL [Concomitant]
     Dates: start: 20080409
  4. METOCLOPRAMIDE [Concomitant]
     Route: 048
     Dates: start: 20080602
  5. DEXAMETHASONE [Concomitant]
     Dates: start: 20080607
  6. MOVICOL [Concomitant]
     Route: 048
     Dates: start: 20080428
  7. PANTHENOL [Concomitant]
     Route: 048
     Dates: start: 20080428

REACTIONS (1)
  - DEATH [None]
